FAERS Safety Report 7820312-9 (Version None)
Quarter: 2011Q4

REPORT INFORMATION
  Report Type: 
  Country: None (occurrence: None)
  Receive Date: 20111018
  Receipt Date: 20111004
  Transmission Date: 20120403
  Serious: Yes (Hospitalization)
  Sender: FDA-Public Use
  Company Number: DE-ROCHE-1002562

PATIENT
  Age: 71 Year
  Sex: Female

DRUGS (8)
  1. AVASTIN [Suspect]
     Indication: RECTAL CANCER
     Route: 065
  2. OXAZEPAM [Concomitant]
     Route: 065
  3. VITAMIN D [Concomitant]
     Route: 065
  4. CEFASEL [Concomitant]
     Route: 065
  5. DICLOFENAC [Concomitant]
     Route: 065
  6. OMEPRAZOLE [Concomitant]
     Route: 065
  7. ALENDRON [Concomitant]
     Route: 065
  8. CAPTOHEXAL [Concomitant]
     Route: 065

REACTIONS (5)
  - HYPOCALCAEMIA [None]
  - LEUKOPENIA [None]
  - GASTROENTERITIS [None]
  - RENAL IMPAIRMENT [None]
  - DEHYDRATION [None]
